FAERS Safety Report 7992322-2 (Version None)
Quarter: 2011Q4

REPORT INFORMATION
  Report Type: 
  Country: None (occurrence: None)
  Receive Date: 20111219
  Receipt Date: 20110125
  Transmission Date: 20120403
  Serious: No
  Sender: FDA-Public Use
  Company Number: US-ASTRAZENECA-2010SE57113

PATIENT
  Sex: Female
  Weight: 69.4 kg

DRUGS (4)
  1. ZETIA [Concomitant]
     Indication: BLOOD CHOLESTEROL INCREASED
  2. LYRICA [Concomitant]
  3. CRESTOR [Suspect]
     Route: 048
  4. CRESTOR [Suspect]
     Indication: HYPERCHOLESTEROLAEMIA
     Route: 048
     Dates: start: 20030101, end: 20100101

REACTIONS (3)
  - MYALGIA [None]
  - BLOOD PRESSURE INCREASED [None]
  - NEUROPATHY PERIPHERAL [None]
